FAERS Safety Report 13876640 (Version 3)
Quarter: 2017Q4

REPORT INFORMATION
  Report Type: Spontaneous
  Country: US (occurrence: US)
  Receive Date: 20170817
  Receipt Date: 20171010
  Transmission Date: 20180320
  Serious: No
  Sender: FDA-Public Use
  Company Number: GXBR2017US002229

PATIENT
  Age: 59 Year
  Sex: Male
  Weight: 85.71 kg

DRUGS (4)
  1. CLONAZEPAM TABLETS, USP [Suspect]
     Active Substance: CLONAZEPAM
     Indication: IRRITABILITY
  2. CLONAZEPAM TABLETS, USP [Suspect]
     Active Substance: CLONAZEPAM
     Indication: SEIZURE
     Dosage: 1 DF, BID
     Route: 065
     Dates: start: 201706
  3. CLONAZEPAM TABLETS, USP [Suspect]
     Active Substance: CLONAZEPAM
     Indication: PANIC ATTACK
     Dosage: 10 DF, ONCE/SINGLE
     Route: 065
     Dates: start: 20170815
  4. CLONAZEPAM TABLETS, USP [Suspect]
     Active Substance: CLONAZEPAM
     Indication: ANXIETY

REACTIONS (18)
  - Abdominal pain upper [Recovering/Resolving]
  - Mood swings [Recovering/Resolving]
  - Disturbance in attention [Recovering/Resolving]
  - Headache [Recovering/Resolving]
  - Panic attack [Recovering/Resolving]
  - Fall [Recovering/Resolving]
  - Diarrhoea [Recovering/Resolving]
  - Concussion [Recovering/Resolving]
  - Amnesia [Recovering/Resolving]
  - Dysgeusia [Recovering/Resolving]
  - Drug ineffective [Unknown]
  - Nervousness [Recovering/Resolving]
  - Muscle tightness [Recovering/Resolving]
  - Intentional overdose [Not Recovered/Not Resolved]
  - Insomnia [Recovering/Resolving]
  - Irritability [Recovering/Resolving]
  - Eye contusion [Recovering/Resolving]
  - Anxiety [Recovering/Resolving]

NARRATIVE: CASE EVENT DATE: 20170815
